FAERS Safety Report 4478130-8 (Version None)
Quarter: 2004Q4

REPORT INFORMATION
  Report Type: 
  Country: None (occurrence: None)
  Receive Date: 20041013
  Receipt Date: 20040929
  Transmission Date: 20050328
  Serious: Yes (Death, Hospitalization)
  Sender: FDA-Public Use
  Company Number: CA_040607042

PATIENT
  Age: 75 Year
  Sex: Male
  Weight: 80 kg

DRUGS (19)
  1. XIGRIS [Suspect]
     Indication: SEPTIC SHOCK
     Dosage: 1920 UG/HR
     Dates: start: 20040316, end: 20040320
  2. PREDNISONE [Concomitant]
  3. PROBENECID [Concomitant]
  4. FUROSEMIDE [Concomitant]
  5. POTASSIUM [Concomitant]
  6. SOTALOL HCL [Concomitant]
  7. WARFARIN [Concomitant]
  8. VASOPRESSIN INJECTION [Concomitant]
  9. NOREPINEPHRINE [Concomitant]
  10. MILRINONE [Concomitant]
  11. NOVOLIN TORONTO (INSULIN) [Concomitant]
  12. PANTOPRAZOLE [Concomitant]
  13. FUROSEMIDE [Concomitant]
  14. MORPHINE [Concomitant]
  15. FENTANYL [Concomitant]
  16. METOCLOPRAMIDE [Concomitant]
  17. HYDROCORTISONE [Concomitant]
  18. AZITHROMYCIN [Concomitant]
  19. PIPERACILLIN W/TAZOBACTAM [Concomitant]

REACTIONS (12)
  - ABDOMINAL PAIN [None]
  - ASPIRATION [None]
  - ASTHENIA [None]
  - ATELECTASIS [None]
  - DEPRESSED LEVEL OF CONSCIOUSNESS [None]
  - FOOD INTOLERANCE [None]
  - HYPOTENSION [None]
  - HYPOXIA [None]
  - INFUSION RELATED REACTION [None]
  - LACTIC ACIDOSIS [None]
  - PNEUMONIA PNEUMOCOCCAL [None]
  - RETROPERITONEAL HAEMATOMA [None]
